FAERS Safety Report 4319069-8 (Version None)
Quarter: 2004Q1

REPORT INFORMATION
  Report Type: 
  Country: None (occurrence: None)
  Receive Date: 20040318
  Receipt Date: 20040318
  Transmission Date: 20041129
  Serious: Yes (Other)
  Sender: FDA-Public Use
  Company Number: None

PATIENT
  Sex: Female
  Weight: 72 kg

DRUGS (3)
  1. HEPARIN [Suspect]
     Indication: CORONARY ARTERY DISEASE
     Dosage: 680U/HR CONTINUOUS INTRAVENOUS
     Route: 042
     Dates: start: 20040309, end: 20040310
  2. EPTIFIBATIDE 2 MG/ML [Suspect]
     Indication: CHEST PAIN
     Dosage: 4.3 ML/HR CONTINUOUS INTRAVENOUS
     Route: 042
     Dates: start: 20040310, end: 20040311
  3. EPTIFIBATIDE 2 MG/ML [Suspect]
     Indication: CORONARY ARTERY DISEASE
     Dosage: 4.3 ML/HR CONTINUOUS INTRAVENOUS
     Route: 042
     Dates: start: 20040310, end: 20040311

REACTIONS (1)
  - HEPARIN-INDUCED THROMBOCYTOPENIA [None]
